FAERS Safety Report 9391381 (Version 1)
Quarter: 2013Q3

REPORT INFORMATION
  Report Type: Report from Study
  Country: US (occurrence: US)
  Receive Date: 20130709
  Receipt Date: 20130709
  Transmission Date: 20140515
  Serious: Yes (Hospitalization)
  Sender: FDA-Public Use
  Company Number: US-ASTELLAS-2013EU005172

PATIENT
  Age: 58 Year
  Sex: Male
  Weight: 102.9 kg

DRUGS (20)
  1. BLINDED FIDAXOMICIN [Suspect]
     Indication: PROPHYLAXIS
     Dosage: 1 DF, UID/QD
     Route: 048
     Dates: start: 20130417, end: 20130518
  2. PROGRAF [Suspect]
     Indication: PROPHYLAXIS AGAINST TRANSPLANT REJECTION
     Dosage: 1 MG, BID
     Route: 048
     Dates: start: 20130506, end: 20130515
  3. PROGRAF [Suspect]
     Dosage: 0.5 MG, BID
     Route: 048
     Dates: start: 20130517
  4. TYLENOL [Concomitant]
     Indication: PREMEDICATION
     Dosage: 650 MG, PRN
     Route: 048
     Dates: start: 20130325, end: 20130510
  5. NEXIUM [Concomitant]
     Indication: GASTROOESOPHAGEAL REFLUX DISEASE
     Dosage: 40 MG, BID
     Route: 048
     Dates: start: 20130403
  6. HYDROCORTISONE [Concomitant]
     Indication: PREMEDICATION
     Dosage: 50-100 MG, SINGLE
     Route: 042
     Dates: start: 20130325, end: 20130510
  7. SYNTHROID [Concomitant]
     Indication: HYPOTHYROIDISM
     Dosage: 25 MCG, QD
     Route: 048
     Dates: start: 20130329
  8. MAGNESIUM SULFATE [Concomitant]
     Indication: HYPOMAGNESAEMIA
     Dosage: 2 G, PRN
     Route: 042
     Dates: start: 20130406, end: 20130513
  9. AVELOX [Concomitant]
     Indication: ANTIBIOTIC PROPHYLAXIS
     Dosage: 400 MG, QD
     Route: 048
     Dates: start: 20130404, end: 20130511
  10. FLOMAX [Concomitant]
     Indication: BENIGN PROSTATIC HYPERPLASIA
     Dosage: 0.4 MG, QD
     Route: 048
     Dates: start: 20130118
  11. ACTIGALL [Concomitant]
     Indication: PROPHYLAXIS
     Dosage: 300 MG, BID
     Route: 048
     Dates: start: 20130415
  12. BENADRYL [Concomitant]
     Indication: PREMEDICATION
     Dosage: 25-50 MG, PRN
     Route: 042
     Dates: start: 20130422, end: 20130510
  13. NEUPOGEN [Concomitant]
     Indication: NEUTROPENIA
     Dosage: 480-MCG, QD
     Route: 058
     Dates: start: 20130428, end: 20130513
  14. ORAMORPH [Concomitant]
     Indication: MUCOSITIS MANAGEMENT
     Dosage: 15 MG, BID
     Route: 048
     Dates: start: 20130501, end: 20130513
  15. CELLCEPT [Concomitant]
     Indication: PROPHYLAXIS AGAINST TRANSPLANT REJECTION
     Dosage: 1385 MG, TID
     Route: 042
     Dates: start: 20130423, end: 20130511
  16. CELLCEPT [Concomitant]
     Dosage: 1250 MG, TID
     Route: 048
     Dates: start: 20130511
  17. MEPHYTON [Concomitant]
     Indication: MEDICAL DIET
     Dosage: 10 MG, Q7DAYS
     Route: 058
     Dates: start: 20130422, end: 20130513
  18. VALTREX [Concomitant]
     Indication: PROPHYLAXIS
     Dosage: 2000 MG, QID
     Route: 048
     Dates: start: 20130422
  19. VORICONAZOLE [Concomitant]
     Indication: ANTIFUNGAL PROPHYLAXIS
     Dosage: 400 MG, BID
     Route: 048
     Dates: start: 20130422
  20. BACTRIM [Concomitant]
     Indication: ANTIFUNGAL PROPHYLAXIS
     Dosage: 1 TABLET, BID SAT/SUN
     Route: 048
     Dates: start: 20130420, end: 20130602

REACTIONS (1)
  - Jugular vein thrombosis [Recovering/Resolving]
